FAERS Safety Report 9308191 (Version 3)
Quarter: 2013Q3

REPORT INFORMATION
  Report Type: Report from Study
  Country: DE (occurrence: DE)
  Receive Date: 20130524
  Receipt Date: 20130917
  Transmission Date: 20140515
  Serious: Yes (Hospitalization)
  Sender: FDA-Public Use
  Company Number: DE-PFIZER INC-2013142320

PATIENT
  Age: 76 Year
  Sex: Male
  Weight: 57 kg

DRUGS (3)
  1. TEMSIROLIMUS [Suspect]
     Dosage: 50 MG, UNK
     Dates: start: 20130217
  2. BENDAMUSTINE [Suspect]
     Dosage: 158.4 MG, UNK
     Route: 042
     Dates: start: 20130216
  3. RITUXIMAB [Suspect]
     Dosage: 660 MG, UNK
     Dates: start: 20130216

REACTIONS (1)
  - Febrile neutropenia [Recovered/Resolved]
